FAERS Safety Report 5158169-X (Version None)
Quarter: 2006Q4

REPORT INFORMATION
  Report Type: 
  Country: None (occurrence: None)
  Receive Date: 20061120
  Receipt Date: 20061120
  Transmission Date: 20070319
  Serious: Yes (Disabling)
  Sender: FDA-Public Use
  Company Number: None

PATIENT
  Age: 48 Year
  Sex: Female
  Weight: 57.6068 kg

DRUGS (2)
  1. CREST PRO-HEALTH   PROCTER AND GAMBLE [Suspect]
     Indication: DENTAL PLAQUE
     Dosage: 20 ML  NIGHTLY  PO
     Route: 048
     Dates: start: 20050101, end: 20060101
  2. CREST PRO-HEALTH   PROCTER AND GAMBLE [Suspect]
     Indication: PROPHYLAXIS
     Dosage: 20 ML  NIGHTLY  PO
     Route: 048
     Dates: start: 20050101, end: 20060101

REACTIONS (2)
  - PHARMACEUTICAL PRODUCT COMPLAINT [None]
  - TOOTH DISCOLOURATION [None]
